FAERS Safety Report 20926962 (Version 1)
Quarter: 2022Q2

REPORT INFORMATION
  Report Type: Spontaneous
  Country: US (occurrence: US)
  Receive Date: 20220607
  Receipt Date: 20220607
  Transmission Date: 20220721
  Serious: No
  Sender: FDA-Public Use
  Company Number: US-PERRIGO-21US028262

PATIENT
  Age: 60 Year
  Sex: Male
  Weight: 74.83 kg

DRUGS (2)
  1. MINOXIDIL [Suspect]
     Active Substance: MINOXIDIL
     Indication: Alopecia
     Dosage: HALF CUPFUL, BID
     Route: 061
     Dates: start: 20210901, end: 20210908
  2. CRESTOR [Concomitant]
     Active Substance: ROSUVASTATIN CALCIUM
     Indication: Blood cholesterol increased
     Dosage: UNK, UNK
     Route: 065

REACTIONS (5)
  - Hypersensitivity [Recovering/Resolving]
  - Application site erosion [Recovering/Resolving]
  - Application site rash [Recovering/Resolving]
  - Pruritus [Recovering/Resolving]
  - Application site pruritus [Not Recovered/Not Resolved]

NARRATIVE: CASE EVENT DATE: 20210904
